FAERS Safety Report 25795341 (Version 1)
Quarter: 2025Q3

REPORT INFORMATION
  Report Type: Report from Study
  Country: GB (occurrence: GB)
  Receive Date: 20250912
  Receipt Date: 20250912
  Transmission Date: 20251021
  Serious: Yes (Hospitalization)
  Sender: RANBAXY
  Company Number: GB-ALMIRALL-GB-2025-3198

PATIENT
  Age: 33 Year
  Sex: Male
  Weight: 57.9 kg

DRUGS (1)
  1. TILDRAKIZUMAB [Suspect]
     Active Substance: TILDRAKIZUMAB
     Indication: Psoriasis
     Route: 065
     Dates: start: 20240220

REACTIONS (1)
  - Hypokalaemia [Recovered/Resolved with Sequelae]

NARRATIVE: CASE EVENT DATE: 20241028
